FAERS Safety Report 6721741-7 (Version None)
Quarter: 2010Q2

REPORT INFORMATION
  Report Type: 
  Country: None (occurrence: None)
  Receive Date: 20100512
  Receipt Date: 20100512
  Transmission Date: 20101027
  Serious: Yes (Other)
  Sender: FDA-Public Use
  Company Number: None

PATIENT
  Age: 4 Year
  Sex: Female
  Weight: 17.2367 kg

DRUGS (3)
  1. ZYRTEC [Suspect]
     Indication: MULTIPLE ALLERGIES
     Dosage: 1/2 TSP. 1 TIME DAILY ORAL
     Route: 048
     Dates: start: 20100426, end: 20100429
  2. CHILDREN'S MOTRIN [Suspect]
     Indication: HEADACHE
     Dosage: 1 1/2 TSP. 7AM AND 8PM ORAL
     Route: 048
     Dates: start: 20100427, end: 20100430
  3. CHILDREN'S MOTRIN [Suspect]
     Indication: PYREXIA
     Dosage: 1 1/2 TSP. 7AM AND 8PM ORAL
     Route: 048
     Dates: start: 20100427, end: 20100430

REACTIONS (4)
  - COUGH [None]
  - HEADACHE [None]
  - MALAISE [None]
  - VOMITING [None]
